FAERS Safety Report 12631449 (Version 2)
Quarter: 2016Q3

REPORT INFORMATION
  Report Type: Spontaneous
  Country: US (occurrence: US)
  Receive Date: 20160808
  Receipt Date: 20160808
  Transmission Date: 20161109
  Serious: No
  Sender: FDA-Public Use
  Company Number: US-BEH-2015053968

PATIENT
  Age: 66 Year
  Sex: Female
  Weight: 87 kg

DRUGS (25)
  1. ZOLOFT [Concomitant]
     Active Substance: SERTRALINE HYDROCHLORIDE
  2. FUROSEMIDE. [Concomitant]
     Active Substance: FUROSEMIDE
  3. LIDOCAINE/ PRILOCAINE [Concomitant]
  4. FLUTICASONE [Concomitant]
     Active Substance: FLUTICASONE\FLUTICASONE PROPIONATE
  5. PROBIOTIC [Concomitant]
     Active Substance: PROBIOTICS NOS
  6. COMPLETE VITAMIN [Concomitant]
  7. TRAMADOL. [Concomitant]
     Active Substance: TRAMADOL
  8. PHENAZOPYRIDINE. [Concomitant]
     Active Substance: PHENAZOPYRIDINE
  9. OXYCODONE [Concomitant]
     Active Substance: OXYCODONE
  10. ACETAMINOPHEN. [Concomitant]
     Active Substance: ACETAMINOPHEN
  11. CHOLESTYRAMINE. [Concomitant]
     Active Substance: CHOLESTYRAMINE
  12. PREDNISONE. [Concomitant]
     Active Substance: PREDNISONE
  13. NITROFURANTOIN. [Concomitant]
     Active Substance: NITROFURANTOIN
  14. ZYRTEC [Concomitant]
     Active Substance: CETIRIZINE HYDROCHLORIDE
  15. HIZENTRA [Suspect]
     Active Substance: HUMAN IMMUNOGLOBULIN G
     Indication: IMMUNODEFICIENCY COMMON VARIABLE
     Route: 058
  16. ZADITOR [Concomitant]
     Active Substance: KETOTIFEN FUMARATE
  17. EPIPEN [Concomitant]
     Active Substance: EPINEPHRINE
  18. KLOR-CON [Concomitant]
     Active Substance: POTASSIUM CHLORIDE
  19. ESTRADIOL. [Concomitant]
     Active Substance: ESTRADIOL
  20. OMEPRAZOLE. [Concomitant]
     Active Substance: OMEPRAZOLE
  21. LOSARTAN. [Concomitant]
     Active Substance: LOSARTAN
  22. DIPHENHYDRAMINE. [Concomitant]
     Active Substance: DIPHENHYDRAMINE
  23. CARVEDILOL. [Concomitant]
     Active Substance: CARVEDILOL
  24. ALPRAZOLAM. [Concomitant]
     Active Substance: ALPRAZOLAM
  25. DILTIAZEM. [Concomitant]
     Active Substance: DILTIAZEM

REACTIONS (1)
  - Diarrhoea [Recovered/Resolved]

NARRATIVE: CASE EVENT DATE: 20150905
